FAERS Safety Report 8382572-8 (Version None)
Quarter: 2012Q2

REPORT INFORMATION
  Report Type: 
  Country: None (occurrence: None)
  Receive Date: 20120524
  Receipt Date: 20120515
  Transmission Date: 20120825
  Serious: Yes (Hospitalization, Other)
  Sender: FDA-Public Use
  Company Number: PHHY2012BR043164

PATIENT
  Sex: Female
  Weight: 70 kg

DRUGS (2)
  1. MORPHINE [Suspect]
  2. FORMOTEROL FUMARATE [Suspect]
     Indication: ASTHMA
     Dosage: 1 INHALATION OF EACH TREATMENT

REACTIONS (5)
  - NERVOUSNESS [None]
  - DYSURIA [None]
  - ASTHMA [None]
  - INFLUENZA [None]
  - BLADDER DILATATION [None]
